FAERS Safety Report 16018843 (Version 1)
Quarter: 2019Q1

REPORT INFORMATION
  Report Type: Spontaneous
  Country: US (occurrence: US)
  Receive Date: 20190228
  Receipt Date: 20190228
  Transmission Date: 20190418
  Serious: Yes (Hospitalization)
  Sender: FDA-Public Use
  Company Number: US-SA-2019SA050955

PATIENT

DRUGS (2)
  1. MULTAQ [Suspect]
     Active Substance: DRONEDARONE
     Dosage: UNK, UNK
  2. ELIQUIS [Suspect]
     Active Substance: APIXABAN
     Dosage: UNK UNK, UNK

REACTIONS (1)
  - Pulmonary toxicity [Unknown]
